FAERS Safety Report 25597435 (Version 6)
Quarter: 2025Q3

REPORT INFORMATION
  Report Type: Spontaneous
  Country: US (occurrence: US)
  Receive Date: 20250723
  Receipt Date: 20250908
  Transmission Date: 20251020
  Serious: No
  Sender: PFIZER
  Company Number: US-PFIZER INC-202500145927

PATIENT
  Sex: Female

DRUGS (3)
  1. BICILLIN L-A [Suspect]
     Active Substance: PENICILLIN G BENZATHINE
     Indication: Syphilis
     Dates: start: 20250114, end: 20250114
  2. BICILLIN L-A [Suspect]
     Active Substance: PENICILLIN G BENZATHINE
     Dates: start: 20250121, end: 20250121
  3. BICILLIN L-A [Suspect]
     Active Substance: PENICILLIN G BENZATHINE
     Dates: start: 20250123, end: 20250123

REACTIONS (1)
  - Recalled product administered [Unknown]

NARRATIVE: CASE EVENT DATE: 20250114
